FAERS Safety Report 4344478-0 (Version None)
Quarter: 2004Q2

REPORT INFORMATION
  Report Type: 
  Country: None (occurrence: None)
  Receive Date: 20040419
  Receipt Date: 20040319
  Transmission Date: 20050107
  Serious: Yes (Death, Hospitalization, Other)
  Sender: FDA-Public Use
  Company Number: A-CH-2003-03646

PATIENT
  Age: 19 Month
  Sex: Male
  Weight: 6.4 kg

DRUGS (5)
  1. TRACLEER [Suspect]
     Indication: PULMONARY HYPERTENSION
     Dosage: 3 MG, BID, ORAL
     Route: 048
     Dates: start: 20020701, end: 20031219
  2. ALDACTONE [Concomitant]
  3. FUROSEMIDE [Concomitant]
  4. METOLAZONE [Concomitant]
  5. PROPAFENONE HCL [Concomitant]

REACTIONS (19)
  - ALANINE AMINOTRANSFERASE INCREASED [None]
  - ASPARTATE AMINOTRANSFERASE INCREASED [None]
  - BLOOD UREA INCREASED [None]
  - BUNDLE BRANCH BLOCK [None]
  - CARDIOMEGALY [None]
  - CARDIOPULMONARY FAILURE [None]
  - CYSTATIN C INCREASED [None]
  - HEPATIC CONGESTION [None]
  - IATROGENIC INJURY [None]
  - INFECTION [None]
  - LIVER FUNCTION TEST ABNORMAL [None]
  - LUNG INFILTRATION [None]
  - PNEUMONIA [None]
  - PNEUMOTHORAX [None]
  - PULMONARY ARTERY DILATATION [None]
  - PULMONARY OEDEMA [None]
  - RIGHT VENTRICULAR FAILURE [None]
  - TACHYPNOEA [None]
  - VENTRICULAR HYPERTROPHY [None]
